FAERS Safety Report 6714524-5 (Version None)
Quarter: 2010Q2

REPORT INFORMATION
  Report Type: 
  Country: None (occurrence: None)
  Receive Date: 20100506
  Receipt Date: 20100430
  Transmission Date: 20101027
  Serious: Yes (Hospitalization)
  Sender: FDA-Public Use
  Company Number: US-GILEAD-2010-0028308

PATIENT
  Sex: Female

DRUGS (14)
  1. LETAIRIS [Suspect]
     Indication: PULMONARY ARTERIAL HYPERTENSION
     Route: 048
     Dates: start: 20080516
  2. REVATIO [Concomitant]
  3. OXYGEN [Concomitant]
  4. SPIRONOLACTONE [Concomitant]
  5. LASIX [Concomitant]
  6. METOLAZONE [Concomitant]
  7. NEXIUM [Concomitant]
  8. NEOMYCIN [Concomitant]
  9. DARVOCET-N 100 [Concomitant]
  10. SUCRALFATE [Concomitant]
  11. BELLADONNA W/PHENOBARB [Concomitant]
  12. PROMETH VC [Concomitant]
  13. ULTRAM [Concomitant]
  14. K-DUR [Concomitant]

REACTIONS (1)
  - PAIN [None]
